FAERS Safety Report 24585708 (Version 1)
Quarter: 2024Q4

REPORT INFORMATION
  Report Type: Report from Study
  Country: DE (occurrence: DE)
  Receive Date: 20241106
  Receipt Date: 20241106
  Transmission Date: 20250114
  Serious: Yes (Other)
  Sender: ABBVIE
  Company Number: DE-ABBVIE-5987004

PATIENT
  Sex: Female

DRUGS (1)
  1. SKYRIZI [Suspect]
     Active Substance: RISANKIZUMAB-RZAA
     Indication: Psoriatic arthropathy
     Route: 058
     Dates: start: 20220828

REACTIONS (4)
  - Metastases to bone [Not Recovered/Not Resolved]
  - Asthenia [Not Recovered/Not Resolved]
  - Pyrexia [Not Recovered/Not Resolved]
  - Alopecia [Not Recovered/Not Resolved]
